FAERS Safety Report 15953496 (Version 1)
Quarter: 2019Q1

REPORT INFORMATION
  Report Type: Report from Study
  Country: US (occurrence: US)
  Receive Date: 20190213
  Receipt Date: 20190213
  Transmission Date: 20190417
  Serious: No
  Sender: FDA-Public Use
  Company Number: US-CELGENEUS-USA-20190202814

PATIENT
  Age: 25 Year
  Sex: Male

DRUGS (3)
  1. OTEZLA [Suspect]
     Active Substance: APREMILAST
     Dosage: 60 MILLIGRAM
     Route: 048
  2. OTEZLA [Suspect]
     Active Substance: APREMILAST
     Indication: PSORIASIS
     Dosage: 20 MILLIGRAM
     Route: 048
     Dates: start: 201812
  3. OTEZLA [Suspect]
     Active Substance: APREMILAST
     Dosage: 40 MILLIGRAM
     Route: 048

REACTIONS (3)
  - Diarrhoea [Recovered/Resolved]
  - Middle insomnia [Recovered/Resolved]
  - Nausea [Recovered/Resolved]

NARRATIVE: CASE EVENT DATE: 201812
